FAERS Safety Report 5447733-6 (Version None)
Quarter: 2007Q3

REPORT INFORMATION
  Report Type: 
  Country: None (occurrence: None)
  Receive Date: 20070910
  Receipt Date: 20070830
  Transmission Date: 20080115
  Serious: Yes (Hospitalization)
  Sender: FDA-Public Use
  Company Number: DE-ELI_LILLY_AND_COMPANY-DE200708006632

PATIENT
  Age: 59 Year
  Sex: Male

DRUGS (1)
  1. GEMCITABINE HCL [Suspect]
     Indication: BRONCHIAL CARCINOMA
     Dosage: 1250 MG/M2, UNKNOWN
     Route: 042
     Dates: start: 20070827

REACTIONS (3)
  - CARDIOVASCULAR DISORDER [None]
  - CONFUSIONAL STATE [None]
  - PYREXIA [None]
